FAERS Safety Report 8517575-3 (Version None)
Quarter: 2012Q3

REPORT INFORMATION
  Report Type: 
  Country: None (occurrence: None)
  Receive Date: 20120718
  Receipt Date: 20110322
  Transmission Date: 20120928
  Serious: Yes (Other)
  Sender: FDA-Public Use
  Company Number: US-BAYER-2010-002150

PATIENT
  Age: 24 Year
  Sex: Female
  Weight: 95.238 kg

DRUGS (14)
  1. NORINYL [Concomitant]
     Dosage: UNK
     Dates: start: 20090506
  2. VALTREX [Concomitant]
     Dosage: 1 G, QD
  3. PROMETHAZINE [Concomitant]
     Dosage: 25 MG, UNK
  4. VITAMIN D [Concomitant]
     Dosage: 2000 IU, QD
  5. OXYCODONE HCL [Concomitant]
     Dosage: UNK
     Dates: start: 20090629, end: 20090831
  6. METHERGINE [Concomitant]
     Dosage: 0.2 MG, UNK
  7. EXCEDRIN (MIGRAINE) [Concomitant]
     Indication: MIGRAINE
  8. NAPROXEN [Concomitant]
     Dosage: 500 MG, UNK
  9. ISOMETHEPT/ACETAMINOPHINE [Concomitant]
     Dosage: UNK
     Dates: start: 20090713
  10. DICYCLOMINE [Concomitant]
     Dosage: UNK
     Dates: start: 20090825
  11. DIAZEPAM [Concomitant]
     Dosage: 10 MG, UNK
  12. VALACICLOVIR [Concomitant]
     Dosage: 1000 MG, UNK
  13. YAZ [Suspect]
     Dosage: UNK
     Dates: start: 20090301, end: 20090901
  14. COLECALCIFEROL [Concomitant]
     Dosage: 2000 UNITS

REACTIONS (2)
  - GALLBLADDER INJURY [None]
  - CHOLECYSTITIS CHRONIC [None]
